FAERS Safety Report 8976282 (Version 3)
Quarter: 2013Q1

REPORT INFORMATION
  Report Type: Spontaneous
  Country: FI (occurrence: FI)
  Receive Date: 20121220
  Receipt Date: 20130306
  Transmission Date: 20140127
  Serious: Yes (Life-Threatening, Hospitalization)
  Sender: FDA-Public Use
  Company Number: FI-PFIZER INC-2012305784

PATIENT
  Age: 53 Year
  Sex: Male

DRUGS (4)
  1. SUTENT [Suspect]
     Indication: METASTATIC RENAL CELL CARCINOMA
     Dosage: UNK
     Dates: start: 20121022, end: 201211
  2. LOSARTAN [Concomitant]
     Dosage: 100 MG, 1X/DAY
  3. AMLORATIO [Concomitant]
     Dosage: 5 MG, 1X/DAY
  4. DEXAMETASON [Concomitant]
     Dosage: 1.5 MG, 1X/DAY

REACTIONS (2)
  - Stevens-Johnson syndrome [Recovered/Resolved]
  - Laryngeal oedema [Recovered/Resolved]
